FAERS Safety Report 9587477 (Version 1)
Quarter: 2013Q4

REPORT INFORMATION
  Report Type: Spontaneous
  Country: US (occurrence: US)
  Receive Date: 20131003
  Receipt Date: 20131003
  Transmission Date: 20140711
  Serious: No
  Sender: FDA-Public Use
  Company Number: US-BAYER-2013-119665

PATIENT
  Age: 90 Year
  Sex: Female
  Weight: 63.49 kg

DRUGS (4)
  1. ALEVE TABLET [Suspect]
     Indication: ARTHRITIS
     Dosage: 1 DF, PRN
     Route: 048
     Dates: start: 201210
  2. ALEVE TABLET [Suspect]
     Indication: INFLAMMATION
  3. CALCIUM [CALCIUM] [Concomitant]
  4. MAGNESIUM [MAGNESIUM] [Concomitant]

REACTIONS (2)
  - Contusion [None]
  - Pollakiuria [None]
